FAERS Safety Report 4837844-8 (Version None)
Quarter: 2005Q4

REPORT INFORMATION
  Report Type: 
  Country: None (occurrence: None)
  Receive Date: 20051128
  Receipt Date: 20050831
  Transmission Date: 20060501
  Serious: Yes (Death, Life-Threatening)
  Sender: FDA-Public Use
  Company Number: FR-AMGEN-UK148621

PATIENT
  Sex: Male
  Weight: 75 kg

DRUGS (6)
  1. ARANESP [Suspect]
     Indication: ANAEMIA
     Route: 058
     Dates: start: 20041215, end: 20050808
  2. DEXAMETHASONE [Suspect]
     Route: 048
     Dates: start: 20050401, end: 20050808
  3. FUROSEMIDE [Suspect]
     Route: 048
     Dates: start: 20050726, end: 20050808
  4. THALIDOMIDE [Suspect]
     Route: 048
     Dates: start: 20050401, end: 20050808
  5. MICARDIS [Suspect]
     Route: 048
     Dates: start: 20050426, end: 20050808
  6. CORDARONE [Suspect]
     Route: 048
     Dates: start: 20050426, end: 20050808

REACTIONS (2)
  - ARRHYTHMIA [None]
  - ATRIAL FIBRILLATION [None]
